FAERS Safety Report 23937810 (Version 1)
Quarter: 2024Q2

REPORT INFORMATION
  Report Type: Spontaneous
  Country: US (occurrence: US)
  Receive Date: 20240604
  Receipt Date: 20240604
  Transmission Date: 20240716
  Serious: Yes (Death, Hospitalization)
  Sender: FDA-Public Use
  Company Number: US-MYLANLABS-2024M1049974

PATIENT
  Age: 67 Year
  Sex: Female

DRUGS (5)
  1. SUNITINIB [Suspect]
     Active Substance: SUNITINIB
     Indication: Gastrointestinal stromal tumour
     Dosage: UNK
     Route: 065
  2. EVEROLIMUS [Suspect]
     Active Substance: EVEROLIMUS
     Indication: Gastrointestinal stromal tumour
     Dosage: 10 MILLIGRAM, QD
     Route: 065
  3. REGORAFENIB [Suspect]
     Active Substance: REGORAFENIB
     Indication: Gastrointestinal stromal tumour
     Dosage: UNK
     Route: 065
  4. DABRAFENIB [Suspect]
     Active Substance: DABRAFENIB
     Indication: Gastrointestinal stromal tumour
     Dosage: 150 MILLIGRAM, BID (THE PATIENT MISSED SOME OF HER DABRAFENIB DOSES (TREATMENT NONADHERENCE)
     Route: 065
  5. TRAMETINIB [Suspect]
     Active Substance: TRAMETINIB
     Indication: Gastrointestinal stromal tumour
     Dosage: 2 MILLIGRAM, QD
     Route: 065

REACTIONS (3)
  - Drug ineffective [Fatal]
  - Disease progression [Fatal]
  - Palmar-plantar erythrodysaesthesia syndrome [Recovering/Resolving]
